FAERS Safety Report 25869434 (Version 1)
Quarter: 2025Q4

REPORT INFORMATION
  Report Type: Spontaneous
  Country: US (occurrence: US)
  Receive Date: 20251001
  Receipt Date: 20251001
  Transmission Date: 20260117
  Serious: No
  Sender: RECKITT BENCKISER
  Company Number: US-INDIVIOR US-INDV-156977-2024

PATIENT
  Age: 34 Year
  Sex: Male
  Weight: 63.492 kg

DRUGS (2)
  1. SUBOXONE [Suspect]
     Active Substance: BUPRENORPHINE HYDROCHLORIDE\NALOXONE HYDROCHLORIDE
     Indication: Drug abuse
     Dosage: 8 MILLIGRAM, BID
     Route: 060
     Dates: start: 20230630
  2. SUBOXONE [Suspect]
     Active Substance: BUPRENORPHINE HYDROCHLORIDE\NALOXONE HYDROCHLORIDE
     Indication: Drug abuse
     Dosage: UNK
     Route: 065

REACTIONS (6)
  - Vitamin D deficiency [Unknown]
  - Dental caries [Unknown]
  - Tooth erosion [Unknown]
  - Drug dependence [Unknown]
  - Drug abuse [Unknown]
  - Inappropriate schedule of product administration [Unknown]

NARRATIVE: CASE EVENT DATE: 20230629
